FAERS Safety Report 13314755 (Version 2)
Quarter: 2017Q1

REPORT INFORMATION
  Report Type: Spontaneous
  Country: US (occurrence: US)
  Receive Date: 20170309
  Receipt Date: 20170329
  Transmission Date: 20170428
  Serious: No
  Sender: FDA-Public Use
  Company Number: US-PFIZER INC-2017095352

PATIENT
  Sex: Male

DRUGS (3)
  1. AMBIEN [Interacting]
     Active Substance: ZOLPIDEM TARTRATE
     Dosage: UNK UNK, 1X/DAY (AT NIGHT)
  2. LYRICA [Interacting]
     Active Substance: PREGABALIN
     Dosage: UNK
     Dates: start: 2009
  3. ZOLOFT [Suspect]
     Active Substance: SERTRALINE HYDROCHLORIDE
     Dosage: 25 MG, 1X/DAY

REACTIONS (4)
  - Mood altered [Unknown]
  - Mood swings [Unknown]
  - Drug interaction [Unknown]
  - Drug ineffective [Unknown]
